FAERS Safety Report 20534358 (Version 1)
Quarter: 2022Q1

REPORT INFORMATION
  Report Type: Report from Study
  Country: AU (occurrence: AU)
  Receive Date: 20220302
  Receipt Date: 20220302
  Transmission Date: 20220423
  Serious: Yes (Hospitalization)
  Sender: FDA-Public Use
  Company Number: AU-AMGEN-AUSCT2020078581

PATIENT
  Age: 57 Year
  Sex: Female
  Weight: 73.4 kg

DRUGS (24)
  1. AMG-510 [Suspect]
     Active Substance: AMG-510
     Indication: Non-small cell lung cancer stage IV
     Dosage: 360 MILLIGRAM
     Route: 048
     Dates: start: 20200304
  2. AMG-510 [Suspect]
     Active Substance: AMG-510
     Indication: K-ras gene mutation
     Dosage: 240 MILLIGRAM
     Route: 048
     Dates: start: 20200502, end: 20200509
  3. AMG-510 [Suspect]
     Active Substance: AMG-510
     Dosage: 60 MILLIGRAM
     Route: 048
     Dates: start: 20200528
  4. AMG-510 [Suspect]
     Active Substance: AMG-510
     Dosage: 240 MILLIGRAM
     Route: 048
     Dates: start: 20200529, end: 20200605
  5. AMG-510 [Suspect]
     Active Substance: AMG-510
     Dosage: 120 MILLIGRAM
     Route: 048
     Dates: start: 20200616, end: 20200621
  6. PEMBROLIZUMAB [Suspect]
     Active Substance: PEMBROLIZUMAB
     Indication: Non-small cell lung cancer stage IV
     Dosage: 200 MILLIGRAM
     Route: 042
     Dates: start: 20200304
  7. PEMBROLIZUMAB [Suspect]
     Active Substance: PEMBROLIZUMAB
     Indication: K-ras gene mutation
  8. ACETAMINOPHEN [Concomitant]
     Active Substance: ACETAMINOPHEN
     Dosage: 1 GRAM
     Route: 048
     Dates: start: 2018
  9. IRBESARTAN [Concomitant]
     Active Substance: IRBESARTAN
     Dosage: 75 MILLIGRAM
     Route: 048
     Dates: start: 2015
  10. IMODIUM [Concomitant]
     Active Substance: LOPERAMIDE HYDROCHLORIDE
     Dosage: 2 MILLIGRAM
     Route: 048
     Dates: start: 20200304, end: 20200522
  11. HYDROCORTISONE [Concomitant]
     Active Substance: HYDROCORTISONE
     Dosage: 1 UNK
     Route: 061
     Dates: start: 20200311
  12. VENTOLIN [Concomitant]
     Active Substance: ALBUTEROL SULFATE
     Dosage: 2 UNK
     Route: 050
     Dates: start: 20200320
  13. MAXOLON [Concomitant]
     Active Substance: METOCLOPRAMIDE HYDROCHLORIDE
     Dosage: 10 MILLIGRAM
     Route: 048
     Dates: start: 201906
  14. FENTANYL [Concomitant]
     Active Substance: FENTANYL
     Dosage: 50 MICROGRAM
     Route: 061
     Dates: start: 201908
  15. OXYCODONE HYDROCHLORIDE [Concomitant]
     Active Substance: OXYCODONE HYDROCHLORIDE
     Dosage: 5 MILLIGRAM
     Route: 048
     Dates: start: 2018
  16. PALEXIA [Concomitant]
     Active Substance: TAPENTADOL HYDROCHLORIDE
     Dosage: 250 MILLIGRAM
     Route: 048
     Dates: start: 2018
  17. DYDROGESTERONE\ESTRADIOL [Concomitant]
     Active Substance: DYDROGESTERONE\ESTRADIOL
     Dosage: 1 UNK
     Route: 048
     Dates: start: 2013
  18. ESOMEPRAZOLE [Concomitant]
     Active Substance: ESOMEPRAZOLE
     Dosage: 20 MILLIGRAM
     Route: 048
     Dates: start: 2001, end: 20200506
  19. SERTRALINE [Concomitant]
     Active Substance: SERTRALINE HYDROCHLORIDE
     Dosage: 50 MILLIGRAM
     Route: 048
     Dates: start: 1990
  20. BENSERAZIDE\LEVODOPA [Concomitant]
     Active Substance: BENSERAZIDE\LEVODOPA
     Dosage: 2 UNK
     Route: 048
     Dates: start: 2005
  21. MESALAMINE [Concomitant]
     Active Substance: MESALAMINE
     Dosage: 1.5 GRAM
     Route: 048
     Dates: start: 20200402, end: 20200615
  22. BETAMETHASONE [Concomitant]
     Active Substance: BETAMETHASONE
     Dosage: 1 UNK
     Route: 061
     Dates: start: 20200401
  23. PREDNISONE [Concomitant]
     Active Substance: PREDNISONE
     Dosage: 15-75 MILLIGRAM
     Route: 048
     Dates: start: 20200407, end: 20200523
  24. CODEINE PHOSPHATE [Concomitant]
     Active Substance: CODEINE PHOSPHATE
     Dosage: 30 MILLIGRAM
     Route: 048
     Dates: start: 20200414

REACTIONS (1)
  - Colitis [Recovered/Resolved]

NARRATIVE: CASE EVENT DATE: 20200509
